FAERS Safety Report 11378089 (Version 1)
Quarter: 2015Q3

REPORT INFORMATION
  Report Type: Spontaneous
  Country: US (occurrence: US)
  Receive Date: 20150811
  Receipt Date: 20150811
  Transmission Date: 20151125
  Serious: No
  Sender: FDA-Public Use
  Company Number: US-ELI_LILLY_AND_COMPANY-US201201000567

PATIENT
  Age: 40 Year
  Sex: Female
  Weight: 70.3 kg

DRUGS (5)
  1. SPIRONOLACTONE. [Concomitant]
     Active Substance: SPIRONOLACTONE
     Dosage: 50 MG, BID
  2. ADCIRCA [Suspect]
     Active Substance: TADALAFIL
     Indication: PULMONARY ARTERIAL HYPERTENSION
     Dosage: UNK, UNKNOWN
     Dates: start: 20111126, end: 20111209
  3. DIGOXIN. [Concomitant]
     Active Substance: DIGOXIN
     Dosage: 0.125 MG, QD
  4. COUMADIN [Concomitant]
     Active Substance: WARFARIN SODIUM
     Dosage: 7.5 MG, QD
  5. LASIX [Concomitant]
     Active Substance: FUROSEMIDE
     Dosage: 20 MG, QD

REACTIONS (5)
  - Swelling face [Recovered/Resolved]
  - Migraine [Recovered/Resolved]
  - Erythema of eyelid [Unknown]
  - Abdominal distension [Unknown]
  - Diarrhoea [Unknown]

NARRATIVE: CASE EVENT DATE: 20111126
